FAERS Safety Report 14157854 (Version 1)
Quarter: 2017Q4

REPORT INFORMATION
  Report Type: Spontaneous
  Country: US (occurrence: US)
  Receive Date: 20171103
  Receipt Date: 20171103
  Transmission Date: 20180321
  Serious: Yes (Hospitalization, Other)
  Sender: FDA-Public Use
  Company Number: US-FRESENIUS KABI-FK201709273

PATIENT
  Age: 37 Year
  Sex: Male
  Weight: 135.5 kg

DRUGS (16)
  1. STERILE VANCOMYCIN HYDROCHLORIDE, USP [Suspect]
     Active Substance: VANCOMYCIN HYDROCHLORIDE
     Indication: MUSCLE ABSCESS
     Route: 042
     Dates: start: 20171010, end: 20171019
  2. STERILE VANCOMYCIN HYDROCHLORIDE, USP [Suspect]
     Active Substance: VANCOMYCIN HYDROCHLORIDE
     Indication: LEUKOCYTOSIS
  3. STERILE VANCOMYCIN HYDROCHLORIDE, USP [Suspect]
     Active Substance: VANCOMYCIN HYDROCHLORIDE
     Indication: MUSCLE ABSCESS
     Route: 042
     Dates: start: 20171010, end: 20171019
  4. LACTOBACILLUS [Concomitant]
     Active Substance: LACTOBACILLUS ACIDOPHILUS
     Indication: PRODUCT USED FOR UNKNOWN INDICATION
     Route: 065
  5. CLOZAPIN [Concomitant]
     Active Substance: CLOZAPINE
     Indication: PRODUCT USED FOR UNKNOWN INDICATION
     Route: 065
  6. ZOLOFT [Concomitant]
     Active Substance: SERTRALINE HYDROCHLORIDE
     Indication: PRODUCT USED FOR UNKNOWN INDICATION
     Route: 065
  7. TRAMADOL. [Concomitant]
     Active Substance: TRAMADOL
     Indication: PRODUCT USED FOR UNKNOWN INDICATION
     Route: 065
  8. CYCLOBENZAPRINE. [Concomitant]
     Active Substance: CYCLOBENZAPRINE
     Indication: PRODUCT USED FOR UNKNOWN INDICATION
     Route: 065
  9. STERILE VANCOMYCIN HYDROCHLORIDE, USP [Suspect]
     Active Substance: VANCOMYCIN HYDROCHLORIDE
     Indication: NOSOCOMIAL INFECTION
  10. STERILE VANCOMYCIN HYDROCHLORIDE, USP [Suspect]
     Active Substance: VANCOMYCIN HYDROCHLORIDE
     Indication: NOSOCOMIAL INFECTION
  11. ETODOLAC. [Concomitant]
     Active Substance: ETODOLAC
     Indication: PRODUCT USED FOR UNKNOWN INDICATION
     Route: 065
  12. HYDROXYZINE [Concomitant]
     Active Substance: HYDROXYZINE HYDROCHLORIDE
     Indication: PRODUCT USED FOR UNKNOWN INDICATION
     Route: 065
  13. STERILE VANCOMYCIN HYDROCHLORIDE, USP [Suspect]
     Active Substance: VANCOMYCIN HYDROCHLORIDE
     Indication: SEPSIS
  14. STERILE VANCOMYCIN HYDROCHLORIDE, USP [Suspect]
     Active Substance: VANCOMYCIN HYDROCHLORIDE
     Indication: LEUKOCYTOSIS
  15. STERILE VANCOMYCIN HYDROCHLORIDE, USP [Suspect]
     Active Substance: VANCOMYCIN HYDROCHLORIDE
     Indication: SEPSIS
  16. PIPERACILLIN AND TAZOBACTAM [Suspect]
     Active Substance: PIPERACILLIN SODIUM\TAZOBACTAM SODIUM
     Indication: PRODUCT USED FOR UNKNOWN INDICATION
     Route: 042
     Dates: start: 20171010, end: 20171018

REACTIONS (3)
  - Blood creatinine increased [Recovered/Resolved]
  - Drug level increased [Recovered/Resolved]
  - Unevaluable event [Unknown]

NARRATIVE: CASE EVENT DATE: 20171018
